FAERS Safety Report 9500193 (Version 2)
Quarter: 2013Q4

REPORT INFORMATION
  Report Type: Spontaneous
  Country: US (occurrence: None)
  Receive Date: 20130903
  Receipt Date: 20131227
  Transmission Date: 20140711
  Serious: Yes (Hospitalization)
  Sender: FDA-Public Use
  Company Number: 2013MPI00502

PATIENT
  Age: 63 Year
  Sex: Male
  Weight: 122 kg

DRUGS (15)
  1. BRENTUXIMAB VEDOTIN [Suspect]
     Indication: HODGKIN^S DISEASE
     Dosage: 120 MG, QCYCLE, INTRAVENOUS
     Route: 042
     Dates: start: 20130726, end: 20130809
  2. VINBLASTINE [Suspect]
     Indication: HODGKIN^S DISEASE
     Dosage: 15 MG, QCYCLE, INTRAVEOUS
     Route: 042
     Dates: start: 20130726, end: 20130809
  3. DOXORUBICIN [Suspect]
     Indication: HODGKIN^S DISEASE
     Dosage: 60 MG, QCYCLE, INTRAVENOUS
     Route: 042
     Dates: start: 20130726, end: 20130809
  4. DACARBAZINE [Suspect]
     Indication: HODGKIN^S DISEASE
     Dosage: 920 MG, QCYCLE, INTRAVENOUS
     Route: 042
     Dates: start: 20130726, end: 20130809
  5. METFORMIN [Concomitant]
  6. METOPROLOL [Concomitant]
  7. ATORVASTATIN [Concomitant]
  8. ACYCLOVIR (ACICLOVIR) [Concomitant]
  9. PHENERGAN (PROMETHAZINE) [Concomitant]
  10. FLUOXETINE (FLUOXETINE HYDROCHLORIDE) [Concomitant]
  11. SENNA-S (DOCUSATE SODIUM, SENNA ALEXANDRINA) [Concomitant]
  12. MIRALAX (MACROGOL) [Concomitant]
  13. ATIVAN (LORAZEPAM) [Concomitant]
  14. NEXIUM (ESOMEPRAZOLE MAGNESIUM) [Concomitant]
  15. RIVAROXABAN [Concomitant]

REACTIONS (13)
  - Febrile neutropenia [None]
  - Malaise [None]
  - Abdominal pain [None]
  - Cough [None]
  - Nausea [None]
  - Decreased appetite [None]
  - Hallucination [None]
  - Hyponatraemia [None]
  - Fluid overload [None]
  - Sinus tachycardia [None]
  - Supraventricular extrasystoles [None]
  - White blood cell count decreased [None]
  - Culture urine positive [None]
